FAERS Safety Report 13497170 (Version 2)
Quarter: 2018Q3

REPORT INFORMATION
  Report Type: Spontaneous
  Country: US (occurrence: US)
  Receive Date: 20170428
  Receipt Date: 20180919
  Transmission Date: 20181010
  Serious: Yes (Hospitalization)
  Sender: FDA-Public Use
  Company Number: US-LUNDBECK-DKLU2029919

PATIENT
  Age: 46 Year
  Sex: Female

DRUGS (1)
  1. NORTHERA [Suspect]
     Active Substance: DROXIDOPA
     Indication: PRODUCT USED FOR UNKNOWN INDICATION
     Dosage: TITRATION COMPLETE
     Route: 065

REACTIONS (3)
  - Hypotension [Recovered/Resolved]
  - Blood pressure increased [Unknown]
  - Syncope [Unknown]

NARRATIVE: CASE EVENT DATE: 20170503
